FAERS Safety Report 20290585 (Version 1)
Quarter: 2022Q1

REPORT INFORMATION
  Report Type: Spontaneous
  Country: BR (occurrence: BR)
  Receive Date: 20220104
  Receipt Date: 20220104
  Transmission Date: 20220423
  Serious: Yes (Other)
  Sender: FDA-Public Use
  Company Number: BR-AMERICAN REGENT INC-2021003373

PATIENT
  Sex: Female

DRUGS (3)
  1. FERINJECT [Suspect]
     Active Substance: FERRIC CARBOXYMALTOSE
     Indication: Iron deficiency anaemia
     Dosage: 2 VIALS
     Dates: start: 2012
  2. IRON POLYMALTOSE [Suspect]
     Active Substance: IRON POLYMALTOSE
     Indication: Iron deficiency anaemia
     Dosage: UNK
     Route: 065
  3. IRON POLYMALTOSE [Suspect]
     Active Substance: IRON POLYMALTOSE
     Dosage: 20 VIALS, 2 AT A TIME AND IN SALINE SOLUTION EVERY 3 OR 4 MONTHS
     Route: 065

REACTIONS (10)
  - Unevaluable event [Unknown]
  - Blood iron decreased [Unknown]
  - Serum ferritin decreased [Unknown]
  - Transferrin saturation decreased [Unknown]
  - Haemoglobin decreased [Unknown]
  - Malaise [Unknown]
  - Asthenia [Unknown]
  - Nausea [Unknown]
  - Tachycardia [Unknown]
  - Dizziness [Unknown]

NARRATIVE: CASE EVENT DATE: 20210101
